FAERS Safety Report 20644962 (Version 2)
Quarter: 2024Q1

REPORT INFORMATION
  Report Type: Report from Study
  Country: CD (occurrence: CD)
  Receive Date: 20220328
  Receipt Date: 20240212
  Transmission Date: 20240409
  Serious: Yes (Death, Other)
  Sender: FDA-Public Use
  Company Number: CD-SA-SAC20220324000388

PATIENT
  Age: 44 Year
  Weight: 44 kg

DRUGS (1)
  1. FEXINIDAZOLE [Suspect]
     Active Substance: FEXINIDAZOLE
     Dosage: UNK
     Dates: start: 20211030

REACTIONS (6)
  - Seizure [Fatal]
  - Coma [Fatal]
  - Acute pulmonary oedema [Fatal]
  - Ischaemic stroke [Fatal]
  - Haemorrhagic stroke [Fatal]
  - Hypertension [Fatal]

NARRATIVE: CASE EVENT DATE: 20211106
